FAERS Safety Report 7062341-1 (Version None)
Quarter: 2010Q4

REPORT INFORMATION
  Report Type: 
  Country: None (occurrence: None)
  Receive Date: 20101026
  Receipt Date: 20101019
  Transmission Date: 20110411
  Serious: Yes (Hospitalization)
  Sender: FDA-Public Use
  Company Number: AT-ABBOTT-10P-009-0679421-00

PATIENT
  Age: 54 Year
  Sex: Male

DRUGS (13)
  1. DEPAKENE [Suspect]
     Indication: DEPRESSION
     Route: 048
     Dates: start: 20090801, end: 20091116
  2. DEPAKENE [Suspect]
     Route: 048
     Dates: start: 20091117, end: 20091123
  3. DEPAKENE [Suspect]
     Route: 048
     Dates: start: 20091124, end: 20091129
  4. DEPAKENE [Suspect]
     Route: 048
     Dates: start: 20091130, end: 20091206
  5. QUILONORM [Suspect]
     Indication: DEPRESSION
     Route: 048
     Dates: start: 20091028, end: 20091101
  6. QUILONORM [Suspect]
     Route: 048
     Dates: start: 20091102, end: 20091124
  7. QUILONORM [Suspect]
     Route: 048
     Dates: start: 20091125, end: 20091202
  8. QUILONORM [Suspect]
     Route: 048
     Dates: start: 20091203, end: 20100103
  9. QUILONORM [Suspect]
     Route: 048
     Dates: start: 20100104, end: 20100106
  10. QUILONORM [Suspect]
     Route: 048
     Dates: start: 20100107, end: 20100109
  11. OXAZEPAM [Concomitant]
     Indication: PRODUCT USED FOR UNKNOWN INDICATION
     Dates: start: 20091028, end: 20091122
  12. ZYPREXA [Concomitant]
     Indication: PRODUCT USED FOR UNKNOWN INDICATION
     Dates: start: 20091028
  13. GEWACALM [Concomitant]
     Indication: PRODUCT USED FOR UNKNOWN INDICATION

REACTIONS (4)
  - AGITATION [None]
  - BLOOD THYROID STIMULATING HORMONE DECREASED [None]
  - DIARRHOEA [None]
  - TREMOR [None]
